FAERS Safety Report 23805654 (Version 1)
Quarter: 2024Q2

REPORT INFORMATION
  Report Type: Spontaneous
  Country: KR (occurrence: KR)
  Receive Date: 20240502
  Receipt Date: 20240502
  Transmission Date: 20240716
  Serious: No
  Sender: FDA-Public Use
  Company Number: KR-ALKEM LABORATORIES LIMITED-KR-ALKEM-2023-11957

PATIENT
  Sex: Female

DRUGS (5)
  1. LIDOCAINE [Suspect]
     Active Substance: LIDOCAINE
     Indication: Skin wrinkling
     Dosage: 3 MG/1ML (INJECTION)
     Route: 065
  2. LIDOCAINE [Suspect]
     Active Substance: LIDOCAINE
     Indication: Skin atrophy
  3. HYALURONIC ACID [Suspect]
     Active Substance: HYALURONIC ACID
     Indication: Skin wrinkling
     Dosage: UNK (INJECTION)
     Route: 062
  4. HYALURONIC ACID [Suspect]
     Active Substance: HYALURONIC ACID
     Indication: Skin atrophy
  5. EMLA [Concomitant]
     Active Substance: LIDOCAINE\PRILOCAINE
     Indication: Local anaesthesia
     Dosage: UNK (LIDOCAINE HCL 2.5% AND PRILOCAINE 2.5%)
     Route: 065

REACTIONS (2)
  - Skin mass [Recovering/Resolving]
  - Injection site bruising [Recovering/Resolving]
